FAERS Safety Report 8408002-5 (Version None)
Quarter: 2012Q2

REPORT INFORMATION
  Report Type: 
  Country: None (occurrence: None)
  Receive Date: 20120604
  Receipt Date: 20120521
  Transmission Date: 20120825
  Serious: Yes (Other)
  Sender: FDA-Public Use
  Company Number: US-MERCK-1205USA04118

PATIENT
  Age: 50 Year
  Sex: Male

DRUGS (3)
  1. ISENTRESS [Suspect]
     Indication: HIV INFECTION
     Route: 048
     Dates: start: 20090101
  2. INTELENCE [Concomitant]
     Route: 065
  3. TRUVADA [Concomitant]
     Route: 065

REACTIONS (1)
  - NEUROPATHY PERIPHERAL [None]
